FAERS Safety Report 9672323 (Version 2)
Quarter: 2014Q1

REPORT INFORMATION
  Report Type: Spontaneous
  Country: AU (occurrence: None)
  Receive Date: 20131105
  Receipt Date: 20140218
  Transmission Date: 20141002
  Serious: Yes (Hospitalization)
  Sender: FDA-Public Use
  Company Number: 2013AP009440

PATIENT
  Age: 80 Year
  Sex: Female

DRUGS (1)
  1. CLOPIDOGREL (CLOPIDOGREL) [Suspect]
     Indication: CEREBROVASCULAR ACCIDENT

REACTIONS (4)
  - Rectal prolapse [None]
  - Rectal haemorrhage [None]
  - Intestinal obstruction [None]
  - Intestinal strangulation [None]
